FAERS Safety Report 4953766-6 (Version None)
Quarter: 2006Q1

REPORT INFORMATION
  Report Type: 
  Country: None (occurrence: None)
  Receive Date: 20060324
  Receipt Date: 20060324
  Transmission Date: 20060701
  Serious: Yes (Other)
  Sender: FDA-Public Use
  Company Number: None

PATIENT
  Sex: Female

DRUGS (2)
  1. FLUOXETINE [Suspect]
     Indication: BIPOLAR DISORDER
     Dosage: PO
     Route: 048
     Dates: start: 19980101
  2. FLUOXETINE [Suspect]
     Indication: BIPOLAR DISORDER
     Dosage: PO
     Route: 048
     Dates: start: 20020101

REACTIONS (2)
  - DRUG INEFFECTIVE [None]
  - PHARMACEUTICAL PRODUCT COMPLAINT [None]
